FAERS Safety Report 5865135-5 (Version None)
Quarter: 2008Q3

REPORT INFORMATION
  Report Type: 
  Country: None (occurrence: None)
  Receive Date: 20080829
  Receipt Date: 20080825
  Transmission Date: 20090109
  Serious: Yes (Death)
  Sender: FDA-Public Use
  Company Number: A0745013A

PATIENT
  Age: 81 Year
  Sex: Female
  Weight: 45 kg

DRUGS (6)
  1. SERETIDE [Suspect]
     Indication: PNEUMONIA
     Dates: start: 20060701, end: 20080725
  2. PANTOPRAZOLE [Concomitant]
     Dates: start: 20060701, end: 20080725
  3. TRYPTANOL [Concomitant]
     Dates: start: 20060701, end: 20080725
  4. BLOPRESS [Concomitant]
     Dates: start: 20060701, end: 20080725
  5. SPORANOX [Concomitant]
     Dates: start: 20080101, end: 20080725
  6. BALCOR [Concomitant]
     Dates: start: 20060701, end: 20080725

REACTIONS (1)
  - DEATH [None]
